FAERS Safety Report 20442300 (Version 1)
Quarter: 2022Q1

REPORT INFORMATION
  Report Type: Report from Study
  Country: DE (occurrence: DE)
  Receive Date: 20220208
  Receipt Date: 20220208
  Transmission Date: 20220423
  Serious: Yes (Other)
  Sender: FDA-Public Use
  Company Number: DE-CELLTRION INC.-2021DE014949

PATIENT

DRUGS (5)
  1. TRASTUZUMAB [Suspect]
     Active Substance: TRASTUZUMAB
     Indication: Breast cancer
     Dosage: DATE OF LAST APPLICATION PRIOR EVENT: 26/MAR/2021
     Route: 065
     Dates: start: 20210108
  2. TRASTUZUMAB [Suspect]
     Active Substance: TRASTUZUMAB
     Dosage: 441 MG; DATE OF LAST APPLICATION PRIOR EVENT: 06/AUG/2021
     Route: 065
     Dates: start: 20210129
  3. PERTUZUMAB [Suspect]
     Active Substance: PERTUZUMAB
     Indication: Breast cancer
     Dosage: 420 MG; DATE OF LAST APPLICATION PRIOR EVENT: 26/MAR/2021, 30/APR/2021
     Route: 065
     Dates: start: 20210108
  4. PERTUZUMAB [Suspect]
     Active Substance: PERTUZUMAB
     Dosage: 420 MG; DATE OF LAST APPLICATION PRIOR EVENT: 06/AUG/2021
     Route: 065
     Dates: start: 20210129
  5. PACLITAXEL [Suspect]
     Active Substance: PACLITAXEL
     Indication: Breast cancer
     Dosage: 138 MG; DATE OF LAST APPLICATION PRIOR EVENT: 26/MAR/2021
     Route: 065
     Dates: start: 20210108, end: 20210409

REACTIONS (5)
  - Polyneuropathy [Recovering/Resolving]
  - Eye inflammation [Unknown]
  - Oedema peripheral [Recovering/Resolving]
  - Dysgeusia [Not Recovered/Not Resolved]
  - Underdose [Unknown]

NARRATIVE: CASE EVENT DATE: 20210401
